FAERS Safety Report 5350935-0 (Version None)
Quarter: 2007Q2

REPORT INFORMATION
  Report Type: 
  Country: None (occurrence: None)
  Receive Date: 20070608
  Receipt Date: 20070530
  Transmission Date: 20071010
  Serious: Yes (Hospitalization)
  Sender: FDA-Public Use
  Company Number: TW-JNJFOC-20070601071

PATIENT
  Age: 18 Year
  Sex: Male

DRUGS (3)
  1. HALOPERIDOL [Suspect]
  2. HALOPERIDOL [Suspect]
     Indication: SCHIZOPHRENIA
  3. TRIHEXYPHENIDYL HCL [Suspect]
     Indication: DRUG USE FOR UNKNOWN INDICATION

REACTIONS (2)
  - MUTISM [None]
  - NEUROLEPTIC MALIGNANT SYNDROME [None]
